FAERS Safety Report 24562537 (Version 2)
Quarter: 2024Q4

REPORT INFORMATION
  Report Type: Spontaneous
  Country: JP (occurrence: JP)
  Receive Date: 20241029
  Receipt Date: 20241104
  Transmission Date: 20250115
  Serious: Yes (Death, Hospitalization, Other)
  Sender: BAYER HEALTHCARE PHARMACEUTICALS INC.
  Company Number: JP-BAYER-2024A152070

PATIENT
  Age: 75 Year
  Sex: Male

DRUGS (3)
  1. XOFIGO [Suspect]
     Active Substance: RADIUM RA-223 DICHLORIDE
     Indication: Hormone-refractory prostate cancer
     Dosage: 55 KBQ/KG, Q4WK,UP TO SIX COURSES
     Route: 042
     Dates: start: 20240815
  2. XOFIGO [Suspect]
     Active Substance: RADIUM RA-223 DICHLORIDE
     Indication: Hormone-refractory prostate cancer
     Dosage: 55 KBQ/KG, Q4WK,UP TO SIX COURSES
     Route: 042
     Dates: start: 20240912
  3. XOFIGO [Suspect]
     Active Substance: RADIUM RA-223 DICHLORIDE
     Indication: Hormone-refractory prostate cancer
     Dosage: 55 KBQ/KG, Q4WK,UP TO SIX COURSES
     Route: 042
     Dates: start: 20241010

REACTIONS (7)
  - Hormone-refractory prostate cancer [Fatal]
  - Condition aggravated [Fatal]
  - Pain [Recovering/Resolving]
  - Myelosuppression [None]
  - White blood cell count decreased [None]
  - Platelet count decreased [None]
  - Infection [None]

NARRATIVE: CASE EVENT DATE: 20241013
